FAERS Safety Report 10954041 (Version 2)
Quarter: 2015Q2

REPORT INFORMATION
  Report Type: Spontaneous
  Country: JP (occurrence: JP)
  Receive Date: 20150325
  Receipt Date: 20150403
  Transmission Date: 20150821
  Serious: Yes (Hospitalization)
  Sender: FDA-Public Use
  Company Number: JP-JNJFOC-20150315651

PATIENT
  Age: 75 Year
  Sex: Female

DRUGS (3)
  1. OPALMON [Concomitant]
     Active Substance: LIMAPROST
     Dosage: ONCE A DAY
     Route: 048
     Dates: start: 20141205, end: 20150316
  2. METHYCOBAL [Concomitant]
     Active Substance: METHYLCOBALAMIN
     Dosage: ONCE A DAY
     Route: 048
     Dates: start: 20141205, end: 20150316
  3. TRAMCET [Suspect]
     Active Substance: ACETAMINOPHEN\TRAMADOL
     Indication: PAIN
     Dosage: FREQUENCY: ONCE A DAY
     Route: 048
     Dates: start: 20150119, end: 20150316

REACTIONS (1)
  - Subdural haematoma [Unknown]
